FAERS Safety Report 8348300-7 (Version None)
Quarter: 2012Q2

REPORT INFORMATION
  Report Type: 
  Country: None (occurrence: None)
  Receive Date: 20120509
  Receipt Date: 20120414
  Transmission Date: 20120825
  Serious: Yes (Death, Hospitalization)
  Sender: FDA-Public Use
  Company Number: US-BAXTER-2012BAX001108

PATIENT
  Sex: Female

DRUGS (2)
  1. DIANEAL LOW CALCIUM W/ DEXTROSE 1.5% [Suspect]
     Indication: PERITONEAL DIALYSIS
  2. DIANEAL [Suspect]
     Indication: PERITONEAL DIALYSIS

REACTIONS (3)
  - HAEMATURIA [None]
  - DEATH [None]
  - URINARY TRACT INFECTION [None]
